FAERS Safety Report 18005902 (Version 1)
Quarter: 2020Q3

REPORT INFORMATION
  Report Type: Spontaneous
  Country: US (occurrence: US)
  Receive Date: 20200709
  Receipt Date: 20200709
  Transmission Date: 20201103
  Serious: No
  Sender: FDA-Public Use
  Company Number: None

PATIENT
  Age: 48 Year
  Sex: Female

DRUGS (1)
  1. EMGALITY [Suspect]
     Active Substance: GALCANEZUMAB-GNLM
     Dosage: ?          OTHER FREQUENCY:ONCE MONTHLY;?
     Route: 058

REACTIONS (1)
  - Alopecia [None]

NARRATIVE: CASE EVENT DATE: 20200709
